FAERS Safety Report 9067464 (Version 2)
Quarter: 2013Q1

REPORT INFORMATION
  Report Type: Spontaneous
  Country: US (occurrence: US)
  Receive Date: 20130214
  Receipt Date: 20130328
  Transmission Date: 20140127
  Serious: Yes (Other)
  Sender: FDA-Public Use
  Company Number: US-AMGEN-USASP2013009867

PATIENT
  Age: 42 Year
  Sex: Male

DRUGS (1)
  1. ENBREL [Suspect]
     Indication: PSORIASIS
     Dosage: 50 MG, 2 TIMES/WK
     Dates: start: 20090101

REACTIONS (7)
  - Intervertebral disc operation [Unknown]
  - Spinal fusion surgery [Unknown]
  - Eye haemorrhage [Recovered/Resolved]
  - Diabetic retinopathy [Recovered/Resolved]
  - Peripheral arterial occlusive disease [Not Recovered/Not Resolved]
  - Nail bed bleeding [Recovered/Resolved]
  - Nail disorder [Recovered/Resolved]
